FAERS Safety Report 4899483-2 (Version None)
Quarter: 2006Q1

REPORT INFORMATION
  Report Type: 
  Country: None (occurrence: None)
  Receive Date: 20060118
  Receipt Date: 20050526
  Transmission Date: 20060701
  Serious: No
  Sender: FDA-Public Use
  Company Number: 2005000997

PATIENT
  Sex: Female
  Weight: 42.6381 kg

DRUGS (6)
  1. TARCEVA [Suspect]
     Indication: NON-SMALL CELL LUNG CANCER
     Dosage: 150 MG (QD), ORAL
     Route: 048
  2. CLONAZEPAM [Concomitant]
  3. TRILEPTAL [Concomitant]
  4. NEXIUM [Concomitant]
  5. PROVIGIL [Concomitant]
  6. CENTRUM (CENTRUM) [Concomitant]

REACTIONS (2)
  - RASH PRURITIC [None]
  - ROSACEA [None]
